FAERS Safety Report 9524141 (Version 1)
Quarter: 2013Q1

REPORT INFORMATION
  Report Type: Spontaneous
  Country: US (occurrence: None)
  Receive Date: 20130305
  Receipt Date: 20130305
  Transmission Date: 20140127
  Serious: Yes (Other)
  Sender: FDA-Public Use
  Company Number: 163-21880-12022554

PATIENT
  Age: 66 Year
  Sex: Male
  Weight: 97.07 kg

DRUGS (6)
  1. REVLIMID [Suspect]
     Indication: PLASMA CELL MYELOMA
     Dates: start: 20111123
  2. AMITRIPTYLINE(AMITRIPTYLINE) [Concomitant]
     Dates: start: 20110504
  3. COUMADIN(WARFARIN SODIUM) [Concomitant]
  4. DEXAMETHASONE [Concomitant]
  5. LOVASTATIN(LOVASTATIN) [Concomitant]
  6. ODANSETRAN(ODANSETRON HYDROCHLORIDE) [Concomitant]

REACTIONS (1)
  - Platelet count decreased [None]
